FAERS Safety Report 7611740-5 (Version None)
Quarter: 2011Q3

REPORT INFORMATION
  Report Type: 
  Country: None (occurrence: None)
  Receive Date: 20110715
  Receipt Date: 20110708
  Transmission Date: 20111222
  Serious: Yes (Hospitalization)
  Sender: FDA-Public Use
  Company Number: GB-CEPHALON-2011001604

PATIENT
  Sex: Male
  Weight: 67 kg

DRUGS (4)
  1. BENDAMUSTINE HCL [Suspect]
     Route: 042
     Dates: start: 20100817
  2. RITUXIMAB [Suspect]
     Dates: start: 20100817
  3. ASPIRIN [Concomitant]
     Dates: start: 19970101
  4. BISOPROLOL [Concomitant]
     Dates: start: 19970101

REACTIONS (1)
  - LOWER RESPIRATORY TRACT INFECTION [None]
